FAERS Safety Report 25671177 (Version 1)
Quarter: 2025Q3

REPORT INFORMATION
  Report Type: Spontaneous
  Country: EU (occurrence: EU)
  Receive Date: 20250812
  Receipt Date: 20250812
  Transmission Date: 20251020
  Serious: Yes (Life-Threatening)
  Sender: ELI LILLY AND COMPANY
  Company Number: None

PATIENT
  Age: 69 Year
  Sex: Male

DRUGS (1)
  1. ERBITUX [Suspect]
     Active Substance: CETUXIMAB
     Indication: Product used for unknown indication
     Route: 042
     Dates: start: 20220315, end: 20220315

REACTIONS (9)
  - Restlessness [Recovered/Resolved]
  - Urticaria [Recovered/Resolved]
  - Throat tightness [Recovered/Resolved]
  - Blood pressure abnormal [Recovered/Resolved]
  - Burning sensation [Recovered/Resolved]
  - Asthenia [Recovered/Resolved]
  - Hypoaesthesia [Recovered/Resolved]
  - Paraesthesia [Recovered/Resolved]
  - Cold sweat [Recovered/Resolved]
